FAERS Safety Report 7223606-3 (Version None)
Quarter: 2011Q1

REPORT INFORMATION
  Report Type: 
  Country: None (occurrence: None)
  Receive Date: 20110112
  Receipt Date: 20100908
  Transmission Date: 20110831
  Serious: No
  Sender: FDA-Public Use
  Company Number: US-ALLERGAN-1011568US

PATIENT
  Age: 63 Year
  Sex: Female

DRUGS (4)
  1. RESTASIS [Suspect]
     Indication: DRY EYE
     Dosage: 1 GTT, BID
     Route: 047
     Dates: end: 20100905
  2. GENTEAL                            /00445101/ [Concomitant]
     Indication: DRY EYE
  3. BLINK                              /00582501/ [Concomitant]
     Indication: DRY EYE
  4. SEQUENCE [Concomitant]
     Indication: DRY EYE

REACTIONS (4)
  - EYE IRRITATION [None]
  - FOREIGN BODY SENSATION IN EYES [None]
  - EYE PRURITUS [None]
  - OCULAR HYPERAEMIA [None]
